FAERS Safety Report 17503445 (Version 1)
Quarter: 2020Q1

REPORT INFORMATION
  Report Type: Spontaneous
  Country: US (occurrence: US)
  Receive Date: 20200305
  Receipt Date: 20200305
  Transmission Date: 20200409
  Serious: Yes (Death, Other)
  Sender: FDA-Public Use
  Company Number: US-TEVA-2020-US-1193421

PATIENT
  Age: 72 Year
  Sex: Male

DRUGS (4)
  1. POTASSIUM CHLORIDE. [Suspect]
     Active Substance: POTASSIUM CHLORIDE
     Indication: INTENTIONAL PRODUCT MISUSE
     Route: 048
  2. SODIUM BICARBONATE. [Suspect]
     Active Substance: SODIUM BICARBONATE
     Indication: CARDIAC ARREST
     Dosage: DRIP
     Route: 065
  3. CALCIUM [Suspect]
     Active Substance: CALCIUM
     Indication: CARDIAC ARREST
     Route: 065
  4. INSULIN [Suspect]
     Active Substance: INSULIN NOS
     Route: 065

REACTIONS (8)
  - Intentional product use issue [Unknown]
  - Unresponsive to stimuli [Unknown]
  - Drug ineffective [Unknown]
  - Pulseless electrical activity [Unknown]
  - Ventricular tachycardia [Unknown]
  - Incontinence [Unknown]
  - Cardiac arrest [Unknown]
  - Cardiac arrest [Fatal]
